FAERS Safety Report 17549970 (Version 1)
Quarter: 2020Q1

REPORT INFORMATION
  Report Type: Spontaneous
  Country: US (occurrence: US)
  Receive Date: 20200317
  Receipt Date: 20200317
  Transmission Date: 20200409
  Serious: Yes (Other)
  Sender: FDA-Public Use
  Company Number: None

PATIENT
  Age: 62 Year
  Sex: Female
  Weight: 75.6 kg

DRUGS (1)
  1. TRINTELLIX [Suspect]
     Active Substance: VORTIOXETINE HYDROBROMIDE
     Indication: DEPRESSION
     Route: 048

REACTIONS (8)
  - Paraesthesia [None]
  - Drug hypersensitivity [None]
  - Tachycardia [None]
  - Chest pain [None]
  - Arrhythmia [None]
  - Gait disturbance [None]
  - Depressed mood [None]
  - Vision blurred [None]

NARRATIVE: CASE EVENT DATE: 20170701
